FAERS Safety Report 8445107-7 (Version None)
Quarter: 2012Q2

REPORT INFORMATION
  Report Type: 
  Country: None (occurrence: None)
  Receive Date: 20120618
  Receipt Date: 20120612
  Transmission Date: 20120825
  Serious: No
  Sender: FDA-Public Use
  Company Number: US-PFIZER INC-2012141640

PATIENT

DRUGS (6)
  1. EFFEXOR XR [Suspect]
     Indication: DEPRESSION
     Dosage: 150 MG, AM AND PM
  2. EFFEXOR XR [Suspect]
     Indication: ANXIETY
  3. ZETIA [Suspect]
     Indication: LIPIDS ABNORMAL
     Dosage: 10 MG, 5PM
  4. OMEPRAZOLE [Suspect]
     Indication: GASTRIC PH INCREASED
     Dosage: 20 MG, 7 AM
  5. LOVAZA [Suspect]
     Indication: BLOOD CHOLESTEROL ABNORMAL
     Dosage: 1 G, 2X/DAY
  6. TRILIPIX [Suspect]
     Indication: BLOOD CHOLESTEROL ABNORMAL
     Dosage: 135 MG, AM

REACTIONS (1)
  - HEADACHE [None]
